FAERS Safety Report 16738358 (Version 3)
Quarter: 2020Q3

REPORT INFORMATION
  Report Type: Spontaneous
  Country: CA (occurrence: CA)
  Receive Date: 20190825
  Receipt Date: 20200806
  Transmission Date: 20201102
  Serious: Yes (Other)
  Sender: FDA-Public Use
  Company Number: CA-SAMSUNG BIOEPIS-SB-2019-23705

PATIENT
  Age: 52 Year
  Sex: Female

DRUGS (3)
  1. ACETAMINOPHEN/IBUPROFEN [Concomitant]
     Indication: PRODUCT USED FOR UNKNOWN INDICATION
     Dosage: UNKNOWN
     Route: 065
  2. RESTORALAX [Concomitant]
     Active Substance: POLYETHYLENE GLYCOL 3350
     Indication: PRODUCT USED FOR UNKNOWN INDICATION
     Dosage: UNKNOWN. POWDER FOR SOLUTION ORAL
     Route: 048
  3. INFLIXIMAB [Suspect]
     Active Substance: INFLIXIMAB
     Indication: COLITIS ULCERATIVE
     Route: 042

REACTIONS (15)
  - Off label use [Unknown]
  - Abdominal pain [Unknown]
  - Coeliac disease [Unknown]
  - Constipation [Unknown]
  - Herpes zoster [Unknown]
  - Road traffic accident [Unknown]
  - Product use issue [Unknown]
  - Inappropriate schedule of product administration [Unknown]
  - Coma [Unknown]
  - Therapeutic product effect incomplete [Unknown]
  - Intentional product use issue [Unknown]
  - Seizure [Unknown]
  - Weight decreased [Unknown]
  - Brain injury [Unknown]
  - Eating disorder [Unknown]
